FAERS Safety Report 24655392 (Version 4)
Quarter: 2025Q1

REPORT INFORMATION
  Report Type: Report from Study
  Country: US (occurrence: US)
  Receive Date: 20241123
  Receipt Date: 20250102
  Transmission Date: 20250409
  Serious: Yes (Hospitalization)
  Sender: AIMMUNE
  Company Number: US-ZENPEP LLC-2024AIMT01567

PATIENT

DRUGS (2)
  1. ZENPEP [Suspect]
     Active Substance: PANCRELIPASE AMYLASE\PANCRELIPASE LIPASE\PANCRELIPASE PROTEASE
     Indication: Pancreatic failure
     Route: 048
     Dates: start: 20240313
  2. ZENPEP [Suspect]
     Active Substance: PANCRELIPASE AMYLASE\PANCRELIPASE LIPASE\PANCRELIPASE PROTEASE
     Route: 048

REACTIONS (1)
  - Cardiac operation [Unknown]
